FAERS Safety Report 13042580 (Version 2)
Quarter: 2017Q1

REPORT INFORMATION
  Report Type: Report from Study
  Country: FR (occurrence: FR)
  Receive Date: 20161219
  Receipt Date: 20170111
  Transmission Date: 20170428
  Serious: Yes (Hospitalization)
  Sender: FDA-Public Use
  Company Number: FR-BAXALTA-2016BLT009315

PATIENT
  Age: 9 Year
  Sex: Female
  Weight: 24.8 kg

DRUGS (8)
  1. PREDNISONE. [Suspect]
     Active Substance: PREDNISONE
     Indication: ACUTE LYMPHOCYTIC LEUKAEMIA
     Dosage: 56 MG
     Route: 042
     Dates: start: 20161107, end: 20161113
  2. ACICLOVIR [Suspect]
     Active Substance: ACYCLOVIR
     Dosage: 375 MG
     Route: 042
     Dates: start: 20161205, end: 20161206
  3. ONCASPAR [Suspect]
     Active Substance: PEGASPARGASE
     Indication: ACUTE LYMPHOCYTIC LEUKAEMIA
     Dosage: 2325 IU
     Route: 042
     Dates: start: 20161118, end: 20161118
  4. ACICLOVIR [Suspect]
     Active Substance: ACYCLOVIR
     Dosage: 1320 MG
     Route: 042
     Dates: start: 20161206, end: 20161210
  5. METHOTREXATE. [Suspect]
     Active Substance: METHOTREXATE
     Indication: ACUTE LYMPHOCYTIC LEUKAEMIA
     Dosage: 12 MG
     Route: 037
     Dates: start: 20161107
  6. VINCRISTINE [Suspect]
     Active Substance: VINCRISTINE
     Indication: ACUTE LYMPHOCYTIC LEUKAEMIA
     Dosage: 1.7 MG
     Route: 042
     Dates: start: 20161114
  7. DEXAMETHASONE. [Suspect]
     Active Substance: DEXAMETHASONE
     Indication: ACUTE LYMPHOCYTIC LEUKAEMIA
     Dosage: 6 MG
     Route: 048
     Dates: start: 20161114, end: 20161211
  8. ACICLOVIR [Suspect]
     Active Substance: ACYCLOVIR
     Indication: MUCOSAL INFLAMMATION
     Dosage: 480 MG
     Route: 042
     Dates: start: 20161210, end: 20161211

REACTIONS (1)
  - Acute kidney injury [Recovered/Resolved]

NARRATIVE: CASE EVENT DATE: 20161210
